FAERS Safety Report 17952147 (Version 1)
Quarter: 2020Q2

REPORT INFORMATION
  Report Type: Spontaneous
  Country: GB (occurrence: GB)
  Receive Date: 20200626
  Receipt Date: 20200626
  Transmission Date: 20200714
  Serious: Yes (Other)
  Sender: FDA-Public Use
  Company Number: GB-ASTRAZENECA-2020SE78603

PATIENT
  Age: 73 Year
  Sex: Female
  Weight: 90 kg

DRUGS (11)
  1. AMITRIPTYLINE HYDROCHLORIDE. [Concomitant]
     Active Substance: AMITRIPTYLINE HYDROCHLORIDE
     Dosage: 1 DF, DAILY, TAKE AT NIGHT
     Route: 065
     Dates: start: 20180731
  2. PARACETAMOL [Concomitant]
     Active Substance: ACETAMINOPHEN
     Dosage: TAKE 1 OR 2, EVERY 4 HOURS, UP TO 4 TIMES A DAY
     Route: 065
     Dates: start: 20180731
  3. CEFALEXIN [Concomitant]
     Active Substance: CEPHALEXIN
     Dosage: TAKE ONE 4 TIMES/DAY FOR 14 DAYS AS
     Route: 065
     Dates: start: 20191127
  4. RANITIDINE. [Concomitant]
     Active Substance: RANITIDINE
     Route: 065
     Dates: start: 20180731, end: 20200415
  5. SALBUTAMOL [Concomitant]
     Active Substance: ALBUTEROL
     Dosage: INHALE 1-2 PUFFS UPTO FOUR TIMES A DAY
     Route: 055
     Dates: start: 20180731
  6. MONTELUKAST [Concomitant]
     Active Substance: MONTELUKAST SODIUM
     Dosage: 1 DF, DAILY, TAKE AT NIGHT
     Route: 065
     Dates: start: 20180731
  7. DOXYCYCLINE. [Concomitant]
     Active Substance: DOXYCYCLINE
     Route: 065
     Dates: start: 20180731
  8. OMEPRAZOLE. [Suspect]
     Active Substance: OMEPRAZOLE
     Route: 048
     Dates: start: 20200415
  9. HYLO-FORTE [Concomitant]
     Active Substance: HYALURONATE SODIUM
     Dosage: USE AS DIRECTED
     Route: 065
     Dates: start: 20180731
  10. FOSTAIR [Concomitant]
     Active Substance: BECLOMETHASONE\FORMOTEROL
     Route: 065
     Dates: start: 20180731
  11. VISCOTEARS [Concomitant]
     Active Substance: CARBOMER
     Dosage: 1.0GTT INTERMITTENT
     Route: 065
     Dates: start: 20180731

REACTIONS (4)
  - Wheezing [Unknown]
  - Mouth swelling [Unknown]
  - Dysgeusia [Unknown]
  - Bronchospasm [Recovered/Resolved]

NARRATIVE: CASE EVENT DATE: 20200604
